FAERS Safety Report 10472567 (Version 1)
Quarter: 2014Q3

REPORT INFORMATION
  Report Type: Spontaneous
  Country: US (occurrence: US)
  Receive Date: 20140924
  Receipt Date: 20140924
  Transmission Date: 20150326
  Serious: No
  Sender: FDA-Public Use
  Company Number: US-PFIZER INC-2014260642

PATIENT
  Age: 25 Year
  Sex: Female

DRUGS (2)
  1. CHANTIX [Suspect]
     Active Substance: VARENICLINE TARTRATE
     Indication: SMOKING CESSATION THERAPY
     Dosage: UNK, 1X/DAY
     Dates: start: 2012, end: 2012
  2. CHANTIX [Suspect]
     Active Substance: VARENICLINE TARTRATE
     Dosage: UNK, 2X/DAY
     Dates: start: 2012

REACTIONS (1)
  - Mood swings [Unknown]

NARRATIVE: CASE EVENT DATE: 2012
